FAERS Safety Report 6611262-4 (Version None)
Quarter: 2010Q1

REPORT INFORMATION
  Report Type: 
  Country: None (occurrence: None)
  Receive Date: 20100301
  Receipt Date: 20100301
  Transmission Date: 20100710
  Serious: No
  Sender: FDA-Public Use
  Company Number: None

PATIENT
  Age: 82 Year
  Sex: Female
  Weight: 45.3597 kg

DRUGS (1)
  1. FORTEO [Suspect]
     Indication: BONE FORMATION DECREASED
     Dosage: 1 QID IM
     Route: 030
     Dates: start: 20100123, end: 20100125

REACTIONS (3)
  - ABASIA [None]
  - BACK PAIN [None]
  - PAIN IN EXTREMITY [None]
